FAERS Safety Report 9126137 (Version 1)
Quarter: 2013Q1

REPORT INFORMATION
  Report Type: Spontaneous
  Country: US (occurrence: US)
  Receive Date: 20130117
  Receipt Date: 20130117
  Transmission Date: 20140127
  Serious: Yes (Other)
  Sender: FDA-Public Use
  Company Number: US-ASTRAZENECA-2013SE01755

PATIENT
  Sex: Female

DRUGS (2)
  1. ZOMIG [Suspect]
     Indication: MIGRAINE
     Dosage: 2.5 MG
     Route: 048
  2. THYROID MEDICATION [Suspect]

REACTIONS (5)
  - Thyroid cancer [Unknown]
  - Drug dose omission [Unknown]
  - Migraine [Unknown]
  - Insomnia [Unknown]
  - Headache [Unknown]
